FAERS Safety Report 22297273 (Version 1)
Quarter: 2023Q2

REPORT INFORMATION
  Report Type: Spontaneous
  Country: DE (occurrence: DE)
  Receive Date: 20230509
  Receipt Date: 20230509
  Transmission Date: 20230722
  Serious: Yes (Other)
  Sender: FDA-Public Use
  Company Number: None

PATIENT
  Age: 53 Year
  Sex: Female
  Weight: 98 kg

DRUGS (3)
  1. PACLITAXEL [Suspect]
     Active Substance: PACLITAXEL
     Indication: Targeted cancer therapy
     Dosage: 80 MG/M2
     Route: 065
     Dates: start: 20221206
  2. CARBOPLATIN [Suspect]
     Active Substance: CARBOPLATIN
     Indication: Targeted cancer therapy
     Dosage: UNK (AUC 1.5)
     Route: 042
     Dates: start: 20221206
  3. KEYTRUDA [Suspect]
     Active Substance: PEMBROLIZUMAB
     Indication: Neoplasm malignant
     Dosage: 200 MG I.V. ALLE 3 WOCHEN BIS 20240228
     Route: 042
     Dates: start: 20221206

REACTIONS (2)
  - Glucocorticoid deficiency [Unknown]
  - Hyponatraemia [Unknown]

NARRATIVE: CASE EVENT DATE: 20230207
